FAERS Safety Report 8567447 (Version 2)
Quarter: 2014Q1

REPORT INFORMATION
  Report Type: Spontaneous
  Country: US (occurrence: None)
  Receive Date: 20120323
  Receipt Date: 20130305
  Transmission Date: 20141002
  Serious: Yes (Hospitalization, Disabling, Other)
  Sender: FDA-Public Use
  Company Number: 163-21880-11101938

PATIENT
  Age: 81 Year
  Sex: Female
  Weight: 88.45 kg

DRUGS (1)
  1. REVLIMID [Suspect]
     Indication: MYELODYSPLASTIC SYNDROME
     Dosage: 10 MG, DAYS 1-21, PO
     Route: 048
     Dates: start: 20110921, end: 20111012

REACTIONS (9)
  - Pancytopenia [None]
  - Mycoplasma infection [None]
  - Pyrexia [None]
  - Rash [None]
  - Diarrhoea [None]
  - Fatigue [None]
  - Restlessness [None]
  - Drug ineffective [None]
  - Condition aggravated [None]
